FAERS Safety Report 19169602 (Version 1)
Quarter: 2021Q2

REPORT INFORMATION
  Report Type: Other
  Country: CZ (occurrence: CZ)
  Receive Date: 20210422
  Receipt Date: 20210422
  Transmission Date: 20210717
  Serious: Yes (Life-Threatening, Hospitalization, Other)
  Sender: FDA-Public Use
  Company Number: CZ-STRIDES ARCOLAB LIMITED-2021SP004566

PATIENT
  Age: 30 Year
  Sex: Female
  Weight: 72 kg

DRUGS (16)
  1. PARALEN (ACETAMINOPHEN) [Suspect]
     Active Substance: ACETAMINOPHEN
     Indication: GENERAL ANAESTHESIA
     Dosage: 500 MILLIGRAM
     Route: 054
     Dates: start: 20160621, end: 20160621
  2. PROPOFOL. [Suspect]
     Active Substance: PROPOFOL
     Indication: GENERAL ANAESTHESIA
     Dosage: UNK
     Route: 042
     Dates: start: 20160621, end: 20160621
  3. NOVALGIN (METAMIZOLE SODIUM) [Suspect]
     Active Substance: METAMIZOLE SODIUM
     Dosage: UNK, SOLUTION FOR INJECTION
     Dates: start: 20160621, end: 20160621
  4. NATRII CHLORIDUM [Suspect]
     Active Substance: SODIUM CHLORIDE
     Indication: GENERAL ANAESTHESIA
     Dosage: UNK (CHLORID SODNY 0.9 % BRAUN),
     Route: 065
     Dates: start: 20160621, end: 20160621
  5. APAURIN [Suspect]
     Active Substance: DIAZEPAM
     Indication: GENERAL ANAESTHESIA
     Dosage: UNK
     Dates: start: 20160621, end: 20160621
  6. ATROPINI SULFAS [Suspect]
     Active Substance: ATROPINE SULFATE
     Indication: GENERAL ANAESTHESIA
     Dosage: 1 MILLILITER (ATROPIN BIOTIKA)
     Route: 065
     Dates: start: 20160621, end: 20160621
  7. NATRII CHLORIDUM [Suspect]
     Active Substance: SODIUM CHLORIDE
     Dosage: UNK, NATRII CHLORIDUM (SODIUM CHLORIDE)
     Route: 065
     Dates: start: 20160621, end: 20160621
  8. NATRII CHLORIDUM [Suspect]
     Active Substance: SODIUM CHLORIDE
     Dosage: 0.9 PERCENT, NATRII CHLORIDUM (SODIUM CHLORIDE)
     Route: 065
     Dates: start: 20160621, end: 20160621
  9. MIDAZOLAM TORREX [Suspect]
     Active Substance: MIDAZOLAM HYDROCHLORIDE
     Indication: GENERAL ANAESTHESIA
     Dosage: UNK
     Route: 065
     Dates: start: 20160621, end: 20160621
  10. IBUPROFEN. [Suspect]
     Active Substance: IBUPROFEN
     Indication: GENERAL ANAESTHESIA
     Dosage: UNK, INJECTION, SOLUTION
     Route: 042
     Dates: start: 20160621, end: 20160621
  11. NOVALGIN (METAMIZOLE SODIUM) [Suspect]
     Active Substance: METAMIZOLE SODIUM
     Indication: GENERAL ANAESTHESIA
     Dosage: UNK, SOLUTION FOR INJECTION
     Dates: start: 20160621, end: 20160621
  12. NOVALGIN (METAMIZOLE SODIUM) [Suspect]
     Active Substance: METAMIZOLE SODIUM
     Dosage: UNK, SOLUTION FOR INJECTION
     Dates: start: 20160621, end: 20160621
  13. ATROPINI SULFAS [Suspect]
     Active Substance: ATROPINE SULFATE
     Dosage: 1 MILLILITER (ATROPINE SULFAS)
     Route: 065
     Dates: start: 20160621, end: 20160621
  14. PARALEN (ACETAMINOPHEN) [Suspect]
     Active Substance: ACETAMINOPHEN
     Dosage: 500 MILLIGRAM
     Route: 054
     Dates: start: 20160621, end: 20160621
  15. PARALEN (ACETAMINOPHEN) [Suspect]
     Active Substance: ACETAMINOPHEN
     Dosage: 500 MILLIGRAM
     Route: 054
     Dates: start: 20160621, end: 20160621
  16. RAPIFEN (ALFENTANIL HYDROCHLORIDE) [Suspect]
     Active Substance: ALFENTANIL HYDROCHLORIDE
     Indication: GENERAL ANAESTHESIA
     Dosage: UNK
     Route: 042
     Dates: start: 20160621, end: 20160621

REACTIONS (10)
  - Disseminated intravascular coagulation [Recovered/Resolved]
  - Vomiting [Recovered/Resolved]
  - Dyspnoea [Recovered/Resolved]
  - Dizziness [Recovered/Resolved]
  - Pleural effusion [Recovered/Resolved]
  - Abdominal pain [Recovered/Resolved]
  - Off label use [Unknown]
  - Haemoperitoneum [Recovered/Resolved]
  - Product quality issue [Unknown]
  - Expired product administered [Unknown]

NARRATIVE: CASE EVENT DATE: 201606
